FAERS Safety Report 4502732-3 (Version None)
Quarter: 2004Q4

REPORT INFORMATION
  Report Type: 
  Country: None (occurrence: None)
  Receive Date: 20041116
  Receipt Date: 20030603
  Transmission Date: 20050328
  Serious: Yes (Life-Threatening, Hospitalization)
  Sender: FDA-Public Use
  Company Number: FR-MERCK-0306FRA00008

PATIENT
  Age: 65 Year
  Sex: Male

DRUGS (9)
  1. VIOXX [Suspect]
     Route: 048
     Dates: start: 20030301
  2. BETAMETHASONE [Suspect]
     Indication: ASTHMA
     Route: 065
     Dates: end: 20030228
  3. PREDNISONE [Suspect]
     Route: 048
     Dates: start: 20030315
  4. TERBUTALINE SULFATE [Concomitant]
     Indication: ASTHMA
     Route: 065
  5. IPRATROPIUM BROMIDE [Concomitant]
     Route: 065
  6. FLUTICASONE PROPIONATE AND SALMETEROL XINAFOATE [Concomitant]
     Indication: ASTHMA
     Route: 065
  7. RILMENIDENE [Concomitant]
     Route: 065
  8. GLIMEPIRIDE [Concomitant]
     Indication: DIABETES MELLITUS
     Route: 065
  9. METHYLPREDNISOLONE SODIUM SUCCINATE [Suspect]
     Route: 065
     Dates: start: 20030311, end: 20030311

REACTIONS (10)
  - BACK PAIN [None]
  - CONFUSIONAL STATE [None]
  - HAEMODYNAMIC INSTABILITY [None]
  - INTERVERTEBRAL DISCITIS [None]
  - LOCALISED INFECTION [None]
  - QUADRIPLEGIA [None]
  - RESPIRATORY DISTRESS [None]
  - SEPSIS [None]
  - STAPHYLOCOCCAL INFECTION [None]
  - TENOSYNOVITIS [None]
